FAERS Safety Report 7399283-8 (Version None)
Quarter: 2011Q1

REPORT INFORMATION
  Report Type: 
  Country: None (occurrence: None)
  Receive Date: 20110322
  Receipt Date: 20110311
  Transmission Date: 20110831
  Serious: Yes (Death, Other)
  Sender: FDA-Public Use
  Company Number: THYM-1000997

PATIENT
  Age: 60 Year
  Sex: Male
  Weight: 66 kg

DRUGS (21)
  1. METHYLPREDNISOLONE [Concomitant]
  2. CHLORPHENIRAMINE MALEATE (CHLORPHENIRAMINE MALEATE) [Concomitant]
  3. MENATETRENONE (MENATETRENONE) [Concomitant]
  4. CARBAZOCHROME SODIUM SULFONATE (CARBAZOCHROME SODIUM SULFONATE) [Concomitant]
  5. VORICONAZOLE (VORICONAZOLE0 [Concomitant]
  6. CYCLOSPORINE [Suspect]
     Indication: APLASTIC ANAEMIA
     Dosage: 200 MG,
     Dates: start: 20090223, end: 20090310
  7. MIXED AMINO ACID_CARBOHYDRATE_ELECTROLYTE_VITAMIN COMBINE (MIXED AMINO [Concomitant]
  8. HUMAN ANTITHROMBIN 3 CONCENTRATED [Concomitant]
  9. THYMOGLOBULIN [Suspect]
     Indication: APLASTIC ANAEMIA
     Dosage: 200 MG, QD, INTRAVENOUS
     Route: 042
     Dates: start: 20090223, end: 20090227
  10. MAINTENANCE MEDIUM (MAINTENANCE MEDIUM) [Concomitant]
  11. DOPAMINE HCL [Concomitant]
  12. SULFAMETTHOXAZOLE AND TRIMETHOPRIM [Concomitant]
  13. FUROSEMIDE (FUROSEMIDE SODIUM) [Concomitant]
  14. SOYBEAN OIL (SOYBEAN OIL) [Concomitant]
  15. LENOGRASTIM (GENETICAL RECOMBINATION) [Concomitant]
  16. MANGANESE CHLORIDE_ZINC SULFATE COMBINED DRUG (MANGANESE CHLORIDE_ZINC [Concomitant]
  17. FILGRASTIM (GENETICAL RECOMBINATION) (FILGRASTIM (GENETICAL RECOMBINAT [Concomitant]
  18. LACTATED RINGER'S (CALCIUM CHLORIDE DIHYDRATE, POTASSIUM CHLORIDE, SOD [Concomitant]
  19. DORIPENEM HYDRATE (DORIPENEM HYDRATE) [Concomitant]
  20. METHYLPREDNISOLONE [Concomitant]
  21. INSULIN HUMAN (GENETICAL RECOMBINATION) (INSULIN HUMAN (GENETICAL RECO [Concomitant]

REACTIONS (14)
  - DISEASE PROGRESSION [None]
  - RESPIRATORY DISORDER [None]
  - DIARRHOEA [None]
  - HALLUCINATION [None]
  - HYPOTENSION [None]
  - INFECTION [None]
  - SEPSIS [None]
  - HAEMORRHAGE SUBCUTANEOUS [None]
  - BLOOD PRESSURE DECREASED [None]
  - HAEMORRHAGIC DIATHESIS [None]
  - ASPERGILLOSIS [None]
  - PNEUMONIA [None]
  - APLASTIC ANAEMIA [None]
  - PYREXIA [None]
